FAERS Safety Report 24583506 (Version 1)
Quarter: 2024Q4

REPORT INFORMATION
  Report Type: Spontaneous
  Country: US (occurrence: US)
  Receive Date: 20241106
  Receipt Date: 20241106
  Transmission Date: 20250115
  Serious: No
  Sender: ALKEM
  Company Number: US-ALKEM LABORATORIES LIMITED-US-ALKEM-2024-17166

PATIENT
  Age: 58 Year
  Sex: Female

DRUGS (5)
  1. TICAGRELOR [Suspect]
     Active Substance: TICAGRELOR
     Indication: Antiplatelet therapy
     Dosage: 180 MILLIGRAM (LOADING DOSE)
     Route: 065
  2. TICAGRELOR [Suspect]
     Active Substance: TICAGRELOR
     Dosage: 90 MILLIGRAM, BID
     Route: 065
  3. ASPIRIN [Concomitant]
     Active Substance: ASPIRIN
     Indication: Antiplatelet therapy
     Dosage: 81 MILLIGRAM, QD (LOADING DOSE)
     Route: 065
  4. ASPIRIN [Concomitant]
     Active Substance: ASPIRIN
     Dosage: 325 MILLIGRAM (DOSE INCREASED)
     Route: 065
  5. CLOPIDOGREL [Concomitant]
     Active Substance: CLOPIDOGREL BISULFATE
     Indication: Antiplatelet therapy
     Dosage: 75 MILLIGRAM, QD
     Route: 065

REACTIONS (3)
  - Inappropriate schedule of product administration [Unknown]
  - Product dose omission issue [Unknown]
  - Drug resistance [Unknown]
